FAERS Safety Report 17997102 (Version 2)
Quarter: 2020Q3

REPORT INFORMATION
  Report Type: Spontaneous
  Country: IT (occurrence: IT)
  Receive Date: 20200709
  Receipt Date: 20200801
  Transmission Date: 20201103
  Serious: Yes (Hospitalization, Other)
  Sender: FDA-Public Use
  Company Number: IT-AUROBINDO-AUR-APL-2020-033713

PATIENT
  Age: 28 Year
  Sex: Female

DRUGS (8)
  1. CLEXANE [Suspect]
     Active Substance: ENOXAPARIN SODIUM
     Indication: HAEMORRHAGE PROPHYLAXIS
     Dosage: 4000 INTERNATIONAL UNIT, ONCE A DAY
     Route: 065
  2. DECAPEPTYL (GONADORELIN) [Suspect]
     Active Substance: GONADORELIN
     Indication: CONTROLLED OVARIAN STIMULATION
     Dosage: UNK
     Route: 065
  3. OVALEAP [Suspect]
     Active Substance: FOLLITROPIN
     Indication: CONTROLLED OVARIAN STIMULATION
     Dosage: 150 INTERNATIONAL UNIT, ONCE A DAY
     Route: 065
  4. DECAPEPTYL (GONADORELIN) [Suspect]
     Active Substance: GONADORELIN
     Dosage: 375 MILLIGRAM PER MILLILITRE
     Route: 065
  5. ORGALUTRAN [Suspect]
     Active Substance: GANIRELIX ACETATE
     Indication: CONTROLLED OVARIAN STIMULATION
     Dosage: NOT REPORTED
     Route: 065
  6. LETROZOLE. [Suspect]
     Active Substance: LETROZOLE
     Indication: CONTROLLED OVARIAN STIMULATION
     Dosage: 5 MILLIGRAM
     Route: 065
  7. DECAPEPTYL (GONADORELIN) [Suspect]
     Active Substance: GONADORELIN
     Indication: PROPHYLACTIC CHEMOTHERAPY
     Dosage: 0.2 MILLIGRAM
     Route: 065
  8. ORGALUTRAN [Suspect]
     Active Substance: GANIRELIX ACETATE
     Dosage: 1 DOSAGE FORM, ONCE A DAY
     Route: 065

REACTIONS (2)
  - Ovarian hyperstimulation syndrome [Recovered/Resolved]
  - Off label use [Unknown]
